FAERS Safety Report 6453517-2 (Version None)
Quarter: 2009Q4

REPORT INFORMATION
  Report Type: 
  Country: None (occurrence: None)
  Receive Date: 20091124
  Receipt Date: 20091117
  Transmission Date: 20100525
  Serious: Yes (Other)
  Sender: FDA-Public Use
  Company Number: US-BAYER-200930969NA

PATIENT
  Age: 27 Year
  Sex: Female
  Weight: 88 kg

DRUGS (4)
  1. MIRENA [Suspect]
     Indication: CONTRACEPTION
     Dosage: CONTINUOUS
     Route: 015
     Dates: start: 20070521, end: 20090811
  2. DOXYCYCLINE [Concomitant]
     Indication: INFECTION PROPHYLAXIS
     Route: 048
     Dates: start: 20070521, end: 20070523
  3. M.V.I. [Concomitant]
  4. CELEXA [Concomitant]
     Route: 048

REACTIONS (8)
  - ABDOMINAL PAIN LOWER [None]
  - ABORTION SPONTANEOUS INCOMPLETE [None]
  - COITAL BLEEDING [None]
  - DEVICE MALFUNCTION [None]
  - DYSPAREUNIA [None]
  - PREGNANCY WITH CONTRACEPTIVE DEVICE [None]
  - UTERINE PROLAPSE [None]
  - VAGINAL HAEMORRHAGE [None]
